FAERS Safety Report 18495504 (Version 1)
Quarter: 2020Q4

REPORT INFORMATION
  Report Type: Spontaneous
  Country: RS (occurrence: RS)
  Receive Date: 20201112
  Receipt Date: 20201112
  Transmission Date: 20210114
  Serious: Yes (Other)
  Sender: FDA-Public Use
  Company Number: NVSC2020RS279742

PATIENT
  Age: 72 Year
  Sex: Male

DRUGS (2)
  1. AZOPT [Suspect]
     Active Substance: BRINZOLAMIDE
     Indication: INTRAOCULAR PRESSURE INCREASED
     Dosage: UNK, BID (ROUTE:OCULAR,IN THE LEFT EYE)
     Route: 047
     Dates: start: 20190606, end: 20200601
  2. DUOTRAV [Suspect]
     Active Substance: TIMOLOL MALEATE\TRAVOPROST
     Indication: INTRAOCULAR PRESSURE INCREASED
     Dosage: 1 DRP, QD (IN THE MORNING) (ROUTE: OCULAR,IN BOTH EYES)
     Route: 047
     Dates: start: 201905

REACTIONS (4)
  - Disease progression [Recovering/Resolving]
  - Eye injury [Unknown]
  - Exfoliation glaucoma [Unknown]
  - Intraocular pressure increased [Recovering/Resolving]

NARRATIVE: CASE EVENT DATE: 20200601
